FAERS Safety Report 6573917-X (Version None)
Quarter: 2010Q1

REPORT INFORMATION
  Report Type: 
  Country: None (occurrence: None)
  Receive Date: 20100204
  Receipt Date: 20100204
  Transmission Date: 20100710
  Serious: Yes (Hospitalization)
  Sender: FDA-Public Use
  Company Number: None

PATIENT
  Sex: Female
  Weight: 46.5 kg

DRUGS (6)
  1. ETOPOSIDE [Suspect]
     Dosage: 320 MG
  2. PREDNISONE [Suspect]
     Dosage: 960 MG
  3. RITUXIMAB (MOAB C2B8 ANTI CD20, CHIMERIC) [Suspect]
     Dosage: 600 MG
  4. VINCRISTINE SULFATE [Suspect]
     Dosage: 2.56 MG
  5. CYCLOPHOSPHAMIDE [Suspect]
     Dosage: 1200 MG
  6. DOXORUBICIN HCL [Suspect]
     Dosage: 64 MG

REACTIONS (6)
  - GENERAL PHYSICAL HEALTH DETERIORATION [None]
  - HYPOPHAGIA [None]
  - HYPOTENSION [None]
  - LETHARGY [None]
  - NAUSEA [None]
  - VOMITING [None]
